FAERS Safety Report 5813930-0 (Version None)
Quarter: 2008Q3

REPORT INFORMATION
  Report Type: 
  Country: None (occurrence: None)
  Receive Date: 20080717
  Receipt Date: 20080707
  Transmission Date: 20090109
  Serious: Yes (Other)
  Sender: FDA-Public Use
  Company Number: US-PFIZER INC-2005086521

PATIENT
  Sex: Female

DRUGS (3)
  1. PROVERA [Suspect]
     Indication: HORMONE REPLACEMENT THERAPY
     Dosage: TEXT:UNKNOWN-FREQ:UNKNOWN
     Route: 048
     Dates: start: 19930101, end: 19961111
  2. PREMARIN [Suspect]
     Indication: HORMONE REPLACEMENT THERAPY
     Dosage: TEXT:UNKNOWN-FREQ:UNKNOWN
     Route: 048
     Dates: start: 19930101, end: 19961111
  3. PREMPRO [Suspect]
     Indication: HORMONE REPLACEMENT THERAPY
     Dosage: TEXT:UNKNOWN-FREQ:UNKNOWN
     Route: 065

REACTIONS (1)
  - BREAST CANCER FEMALE [None]
